FAERS Safety Report 19913214 (Version 1)
Quarter: 2021Q4

REPORT INFORMATION
  Report Type: Spontaneous
  Country: US (occurrence: US)
  Receive Date: 20211004
  Receipt Date: 20211004
  Transmission Date: 20220304
  Serious: Yes (Other)
  Sender: FDA-Public Use
  Company Number: US-MYLANLABS-2021M1068571

PATIENT
  Age: 1 Decade
  Sex: Male

DRUGS (4)
  1. ISOTRETINOIN [Suspect]
     Active Substance: ISOTRETINOIN
     Indication: Dermatitis
     Dosage: UNK
     Route: 065
  2. METHOTREXATE [Suspect]
     Active Substance: METHOTREXATE
     Indication: Dermatitis
     Dosage: UNK
     Route: 065
  3. BIOTIN [Suspect]
     Active Substance: BIOTIN
     Indication: Multiple carboxylase deficiency
     Dosage: UNK
     Route: 065
  4. CYCLOSPORINE [Suspect]
     Active Substance: CYCLOSPORINE
     Indication: Dermatitis
     Dosage: UNK
     Route: 065

REACTIONS (4)
  - Adrenal insufficiency [Unknown]
  - Hypertension [Unknown]
  - Short stature [Unknown]
  - Off label use [Unknown]
